FAERS Safety Report 9629532 (Version 1)
Quarter: 2013Q4

REPORT INFORMATION
  Report Type: Spontaneous
  Country: IT (occurrence: IT)
  Receive Date: 20131017
  Receipt Date: 20131017
  Transmission Date: 20140711
  Serious: Yes (Hospitalization)
  Sender: FDA-Public Use
  Company Number: PHHY2013IT114072

PATIENT
  Sex: Female

DRUGS (5)
  1. ATENOLOL [Suspect]
     Dosage: 100 MG, QD
     Route: 048
     Dates: start: 20120811, end: 20130810
  2. LANOXIN [Suspect]
     Dosage: 0.062 MG, QD
     Route: 048
     Dates: start: 20120811, end: 20130810
  3. COAPROVEL [Concomitant]
  4. COUMADIN [Concomitant]
     Dosage: 5 MG, UNK
  5. LASITONE [Concomitant]

REACTIONS (2)
  - Syncope [Not Recovered/Not Resolved]
  - Bradycardia [Not Recovered/Not Resolved]
